FAERS Safety Report 10870375 (Version 1)
Quarter: 2015Q1

REPORT INFORMATION
  Report Type: Spontaneous
  Country: US (occurrence: US)
  Receive Date: 20150226
  Receipt Date: 20150226
  Transmission Date: 20150721
  Serious: Yes (Hospitalization, Other)
  Sender: FDA-Public Use
  Company Number: US-GILEAD-2015-0137466

PATIENT
  Age: 34 Year
  Sex: Male

DRUGS (4)
  1. VELETRI [Concomitant]
     Active Substance: EPOPROSTENOL
  2. XARELTO [Concomitant]
     Active Substance: RIVAROXABAN
  3. LETAIRIS [Suspect]
     Active Substance: AMBRISENTAN
     Indication: PRODUCT USED FOR UNKNOWN INDICATION
     Dosage: 5 MG, QD
     Route: 065
     Dates: start: 20150203
  4. REVATIO [Concomitant]
     Active Substance: SILDENAFIL CITRATE

REACTIONS (1)
  - Intestinal obstruction [Unknown]
